FAERS Safety Report 8799936 (Version 1)
Quarter: 2012Q4

REPORT INFORMATION
  Report Type: Spontaneous
  Country: US (occurrence: None)
  Receive Date: 20120918
  Receipt Date: 20120918
  Transmission Date: 20130627
  Serious: Yes (Other)
  Sender: FDA-Public Use
  Company Number: None

PATIENT
  Sex: Female
  Weight: 135.63 kg

DRUGS (7)
  1. CYMBALTA [Suspect]
     Indication: DEPRESSION
     Dosage: 60mg 1 QAM PO
     Route: 048
     Dates: start: 20120516, end: 20120527
  2. ALPAZOLAM [Concomitant]
  3. BYSTOLIC [Concomitant]
  4. DILTIAZAM ER [Concomitant]
  5. DYAZIDE [Concomitant]
  6. JANUVIA [Concomitant]
  7. PLAVIX [Concomitant]

REACTIONS (1)
  - Diarrhoea [None]
